FAERS Safety Report 24797487 (Version 4)
Quarter: 2025Q2

REPORT INFORMATION
  Report Type: Report from Study
  Country: US (occurrence: US)
  Receive Date: 20250102
  Receipt Date: 20250522
  Transmission Date: 20250716
  Serious: Yes (Hospitalization, Other)
  Sender: TAKEDA
  Company Number: US-TAKEDA-2024TUS131023

PATIENT
  Age: 44 Year
  Sex: Female
  Weight: 149.6 kg

DRUGS (2)
  1. BRIGATINIB [Suspect]
     Active Substance: BRIGATINIB
     Indication: Neurofibromatosis
     Dosage: 180 MILLIGRAM, QD
     Dates: start: 20241112
  2. BRIGATINIB [Suspect]
     Active Substance: BRIGATINIB
     Dosage: 120 MILLIGRAM, QD

REACTIONS (13)
  - Fall [Unknown]
  - Head injury [Unknown]
  - Pneumonia [Unknown]
  - Influenza [Unknown]
  - Hemiplegia [Unknown]
  - Visual impairment [Unknown]
  - Product use in unapproved indication [Unknown]
  - Blood pressure increased [Unknown]
  - Dysarthria [Unknown]
  - Balance disorder [Unknown]
  - Product dose omission issue [Unknown]
  - Hypoacusis [Unknown]
  - Pain in extremity [Unknown]

NARRATIVE: CASE EVENT DATE: 20241201
